FAERS Safety Report 8957490 (Version 1)
Quarter: 2012Q4

REPORT INFORMATION
  Report Type: Spontaneous
  Country: CA (occurrence: None)
  Receive Date: 20121130
  Receipt Date: 20121130
  Transmission Date: 20130627
  Serious: Yes (Life-Threatening, Hospitalization, Other)
  Sender: FDA-Public Use
  Company Number: 2012P1065380

PATIENT
  Age: 57 Year
  Sex: Female

DRUGS (6)
  1. DILTIAZEM [Suspect]
     Indication: INTENTIONAL OVERDOSE
     Route: 048
  2. BISOPROLOL [Concomitant]
  3. CANDESARTAN/HYDROCHLOROTHIAZIDE [Concomitant]
  4. ACETAMINOPHEN/CAFFEINE/CODEINE [Concomitant]
  5. DIMENHYDRINATE [Concomitant]
  6. ETHANOL [Concomitant]

REACTIONS (9)
  - Laceration [None]
  - Toxicity to various agents [None]
  - Drug screen positive [None]
  - Hypotension [None]
  - ECG signs of myocardial ischaemia [None]
  - Haemodynamic instability [None]
  - Cardiogenic shock [None]
  - No therapeutic response [None]
  - Sinus bradycardia [None]
